FAERS Safety Report 7245217-6 (Version None)
Quarter: 2011Q1

REPORT INFORMATION
  Report Type: 
  Country: None (occurrence: None)
  Receive Date: 20110126
  Receipt Date: 20110125
  Transmission Date: 20110831
  Serious: Yes (Death, Hospitalization)
  Sender: FDA-Public Use
  Company Number: PHHO2010ES19454

PATIENT
  Sex: Male
  Weight: 80 kg

DRUGS (5)
  1. SANDOSTATIN LAR [Concomitant]
     Indication: CARCINOID TUMOUR
  2. AFINITOR [Suspect]
     Indication: CARCINOID TUMOUR
     Dosage: CODE NOT BROKEN
     Route: 048
     Dates: start: 20070601, end: 20100713
  3. BLINDED NO TREATMENT RECEIVED [Suspect]
     Indication: CARCINOID TUMOUR
     Dosage: CODE NOT BROKEN
     Route: 048
     Dates: start: 20070601, end: 20100713
  4. PLACEBO [Suspect]
     Indication: CARCINOID TUMOUR
     Dosage: CODE NOT BROKEN
     Route: 048
     Dates: start: 20070601, end: 20100713
  5. RAD001 [Suspect]
     Indication: CARCINOID TUMOUR
     Dosage: 10 MG, QD
     Route: 048
     Dates: start: 20100726, end: 20101223

REACTIONS (5)
  - RECTAL HAEMORRHAGE [None]
  - HYPOTENSION [None]
  - GASTROINTESTINAL HAEMORRHAGE [None]
  - MELAENA [None]
  - ANAEMIA [None]
